FAERS Safety Report 7712483-X (Version None)
Quarter: 2011Q3

REPORT INFORMATION
  Report Type: 
  Country: None (occurrence: None)
  Receive Date: 20110826
  Receipt Date: 20110826
  Transmission Date: 20111222
  Serious: Yes (Hospitalization)
  Sender: FDA-Public Use
  Company Number: None

PATIENT
  Sex: Male
  Weight: 117 kg

DRUGS (17)
  1. VITAMIN E [Concomitant]
  2. VITAMIN B-12 [Concomitant]
  3. LOVENOX [Concomitant]
  4. ZANTAC [Concomitant]
  5. LISINOPRIL [Concomitant]
  6. PREDNISONE [Concomitant]
  7. DOCETAXEL [Concomitant]
  8. HYDROCODONE BITARTRATE AND ACETAMINOPHEN [Concomitant]
  9. REMERON [Concomitant]
  10. LASIX [Concomitant]
  11. CALCIUM CARBONATE [Concomitant]
  12. PHENERGAN HCL [Concomitant]
  13. RANITIDINE HCL [Concomitant]
  14. XGEVA [Suspect]
     Indication: METASTASES TO BONE
     Dosage: 120MG
     Route: 058
     Dates: start: 20110728, end: 20110728
  15. XGEVA [Suspect]
     Indication: PROSTATE CANCER METASTATIC
     Dosage: 120MG
     Route: 058
     Dates: start: 20110728, end: 20110728
  16. LIPITOR [Concomitant]
  17. ATENOLOL [Concomitant]

REACTIONS (5)
  - NAUSEA [None]
  - ASTHENIA [None]
  - DECREASED APPETITE [None]
  - DISORIENTATION [None]
  - BLOOD CALCIUM DECREASED [None]
